FAERS Safety Report 17021615 (Version 1)
Quarter: 2019Q4

REPORT INFORMATION
  Report Type: Spontaneous
  Country: US (occurrence: US)
  Receive Date: 20191111
  Receipt Date: 20191111
  Transmission Date: 20200122
  Serious: No
  Sender: FDA-Public Use
  Company Number: None

PATIENT
  Sex: Female

DRUGS (1)
  1. LUPRON DEPOT [Suspect]
     Active Substance: LEUPROLIDE ACETATE
     Indication: HYPERPITUITARISM
     Dosage: ?          OTHER FREQUENCY:EVERY THREE MONTHS;?
     Route: 030
     Dates: start: 20190520, end: 20191108

REACTIONS (1)
  - Drug hypersensitivity [None]
